FAERS Safety Report 9102758 (Version 1)
Quarter: 2013Q1

REPORT INFORMATION
  Report Type: Spontaneous
  Country: TR (occurrence: TR)
  Receive Date: 20130219
  Receipt Date: 20130219
  Transmission Date: 20140127
  Serious: Yes (Hospitalization)
  Sender: FDA-Public Use
  Company Number: TR-JNJFOC-20130207004

PATIENT
  Age: 51 Year
  Sex: Female
  Weight: 70 kg

DRUGS (3)
  1. TYLENOL ARTHRITIS PAIN ER [Suspect]
     Route: 065
  2. TYLENOL ARTHRITIS PAIN ER [Suspect]
     Indication: ARTHRALGIA
     Dosage: 650MG ONCE
     Route: 065
     Dates: start: 20130207
  3. TYLENOL [Suspect]
     Indication: HEADACHE
     Dosage: 500MG, 1 TABLET
     Route: 048
     Dates: start: 20130207

REACTIONS (5)
  - Hypersomnia [Unknown]
  - Eating disorder [Unknown]
  - Aphasia [Unknown]
  - Pyrexia [Unknown]
  - Drug administration error [Unknown]
